FAERS Safety Report 25742081 (Version 2)
Quarter: 2025Q3

REPORT INFORMATION
  Report Type: Spontaneous
  Country: US (occurrence: US)
  Receive Date: 20250829
  Receipt Date: 20250923
  Transmission Date: 20251021
  Serious: Yes (Disabling)
  Sender: SANDOZ
  Company Number: US-SANDOZ-SDZ2025US061901

PATIENT
  Age: 67 Year
  Sex: Female
  Weight: 61.224 kg

DRUGS (1)
  1. RECLAST [Suspect]
     Active Substance: ZOLEDRONIC ACID
     Indication: Osteoporosis postmenopausal
     Route: 042
     Dates: start: 20250807

REACTIONS (3)
  - Swelling [Recovered/Resolved]
  - Musculoskeletal stiffness [Recovering/Resolving]
  - Arthralgia [Recovered/Resolved]

NARRATIVE: CASE EVENT DATE: 20250812
